FAERS Safety Report 13121859 (Version 1)
Quarter: 2017Q1

REPORT INFORMATION
  Report Type: Spontaneous
  Country: DE (occurrence: DE)
  Receive Date: 20170117
  Receipt Date: 20170117
  Transmission Date: 20170428
  Serious: Yes (Other)
  Sender: FDA-Public Use
  Company Number: DE-JNJFOC-20170107455

PATIENT
  Age: 0 Day
  Sex: Male
  Weight: 2.76 kg

DRUGS (5)
  1. FOLIC ACID. [Concomitant]
     Active Substance: FOLIC ACID
     Indication: VITAMIN SUPPLEMENTATION
     Dosage: MOTHER DOSING
     Route: 064
     Dates: end: 20160811
  2. TOPIRAMATE. [Suspect]
     Active Substance: TOPIRAMATE
     Indication: EPILEPSY
     Dosage: MOTHER^S DOSE (INITIALLY)
     Route: 064
     Dates: start: 20151103
  3. TOPIRAMATE. [Suspect]
     Active Substance: TOPIRAMATE
     Indication: EPILEPSY
     Dosage: DOSE FROM GESTATIONAL WEEK 29+6.
     Route: 064
     Dates: end: 20160811
  4. FOLIC ACID. [Concomitant]
     Active Substance: FOLIC ACID
     Indication: VITAMIN SUPPLEMENTATION
     Dosage: MOTHER DOSING
     Route: 064
  5. FOLIC ACID. [Concomitant]
     Active Substance: FOLIC ACID
     Indication: VITAMIN SUPPLEMENTATION
     Dosage: MOTHER DOSING
     Route: 064
     Dates: start: 20160129

REACTIONS (3)
  - Microcephaly [Unknown]
  - Small for dates baby [Unknown]
  - Foetal exposure during pregnancy [Recovered/Resolved]

NARRATIVE: CASE EVENT DATE: 20160811
